FAERS Safety Report 8427093-9 (Version None)
Quarter: 2012Q2

REPORT INFORMATION
  Report Type: 
  Country: None (occurrence: None)
  Receive Date: 20120611
  Receipt Date: 20120601
  Transmission Date: 20120825
  Serious: Yes (Other)
  Sender: FDA-Public Use
  Company Number: GB-JNJFOC-20120602657

PATIENT
  Sex: Female

DRUGS (2)
  1. TOPIRAMATE [Suspect]
     Indication: MIGRAINE PROPHYLAXIS
     Route: 048
  2. TOPIRAMATE [Suspect]
     Route: 048

REACTIONS (1)
  - NEUROPATHY PERIPHERAL [None]
